FAERS Safety Report 5481779-7 (Version None)
Quarter: 2007Q4

REPORT INFORMATION
  Report Type: 
  Country: None (occurrence: None)
  Receive Date: 20071010
  Receipt Date: 20071005
  Transmission Date: 20080405
  Serious: Yes (Death)
  Sender: FDA-Public Use
  Company Number: US-GENENTECH-249047

PATIENT
  Age: 61 Year
  Sex: Male

DRUGS (8)
  1. RITUXAN [Suspect]
     Indication: WALDENSTROM'S MACROGLOBULINAEMIA
     Dosage: 700 MG, 1/WEEK
  2. CHLORAMBUCIL [Concomitant]
     Indication: WALDENSTROM'S MACROGLOBULINAEMIA
  3. DEXAMETHASONE 0.5MG TAB [Concomitant]
     Indication: WALDENSTROM'S MACROGLOBULINAEMIA
     Dosage: 20 MG, 1/WEEK
  4. FLUDARABINE PHOSPHATE [Concomitant]
     Indication: WALDENSTROM'S MACROGLOBULINAEMIA
  5. PREDNISONE [Concomitant]
     Indication: WALDENSTROM'S MACROGLOBULINAEMIA
  6. VINCRISTINE [Concomitant]
     Indication: WALDENSTROM'S MACROGLOBULINAEMIA
  7. CYTOXAN [Concomitant]
     Indication: WALDENSTROM'S MACROGLOBULINAEMIA
  8. THALIDOMIDE [Concomitant]
     Indication: WALDENSTROM'S MACROGLOBULINAEMIA

REACTIONS (2)
  - HEPATITIS VIRAL [None]
  - PNEUMONIA [None]
